FAERS Safety Report 5048343-5 (Version None)
Quarter: 2006Q3

REPORT INFORMATION
  Report Type: 
  Country: None (occurrence: None)
  Receive Date: 20060711
  Receipt Date: 20060628
  Transmission Date: 20061208
  Serious: Yes (Death)
  Sender: FDA-Public Use
  Company Number: FR-BOEHRINGER INGELHEIM PHARMACEUTICALS, INC.-2006-FF-00555PF

PATIENT
  Sex: Female
  Weight: 65 kg

DRUGS (7)
  1. SPIRIVA [Suspect]
     Indication: CHRONIC OBSTRUCTIVE PULMONARY DISEASE
     Route: 055
     Dates: start: 20060607
  2. SINGULAIR [Concomitant]
     Indication: CHRONIC OBSTRUCTIVE PULMONARY DISEASE
     Route: 048
  3. SERETIDE [Concomitant]
     Indication: CHRONIC OBSTRUCTIVE PULMONARY DISEASE
     Route: 055
  4. TAHOR [Concomitant]
     Route: 048
  5. AMBROXOL [Concomitant]
     Route: 048
  6. AUGMENTIN '125' [Concomitant]
     Indication: BRONCHITIS
  7. SOLUPRED [Concomitant]
     Indication: BRONCHITIS

REACTIONS (1)
  - CEREBROVASCULAR ACCIDENT [None]
